FAERS Safety Report 5423557-0 (Version None)
Quarter: 2007Q3

REPORT INFORMATION
  Report Type: 
  Country: None (occurrence: None)
  Receive Date: 20070821
  Receipt Date: 20070821
  Transmission Date: 20080115
  Serious: Yes (Life-Threatening, Hospitalization)
  Sender: FDA-Public Use
  Company Number: None

PATIENT
  Age: 70 Year
  Sex: Female
  Weight: 72 kg

DRUGS (10)
  1. PEG-INTRON [Suspect]
     Indication: HEREDITARY HAEMORRHAGIC TELANGIECTASIA
     Dosage: 80MCG SQ ONCE WEEKLY
     Route: 058
     Dates: start: 20070108, end: 20070617
  2. PREMARIN [Concomitant]
  3. SLO-FE [Concomitant]
  4. MULTI-VITAMIN [Concomitant]
  5. VAGIFEM [Concomitant]
  6. LANACORT 5-HYDROCORTISONE CREME [Concomitant]
  7. IMODIUM [Concomitant]
  8. ACIDOPHILUS [Concomitant]
  9. TRIAMCINOLONE [Concomitant]
  10. NASAL CEASE NASAL PACKING [Concomitant]

REACTIONS (7)
  - CONDITION AGGRAVATED [None]
  - CONVULSION [None]
  - EPISTAXIS [None]
  - FATIGUE [None]
  - HAEMORRHAGE [None]
  - LOSS OF CONSCIOUSNESS [None]
  - SYNCOPE VASOVAGAL [None]
